FAERS Safety Report 9669790 (Version 2)
Quarter: 2014Q1

REPORT INFORMATION
  Report Type: Spontaneous
  Country: US (occurrence: US)
  Receive Date: 20131105
  Receipt Date: 20140312
  Transmission Date: 20141002
  Serious: Yes (Other)
  Sender: FDA-Public Use
  Company Number: US-BAYER-2013-133394

PATIENT
  Age: 33 Year
  Sex: Female
  Weight: 97.51 kg

DRUGS (21)
  1. YAZ [Suspect]
     Dosage: UNK
     Dates: start: 2009, end: 2010
  2. YASMIN [Suspect]
     Dosage: UNK
     Dates: start: 2009, end: 2010
  3. OCELLA [Suspect]
     Dosage: UNK
     Dates: start: 2009, end: 2010
  4. PRISTIQ [Concomitant]
     Dosage: 50 MG, QD
     Route: 048
     Dates: start: 20100720
  5. DONNATAL [Concomitant]
     Dosage: 0.0194 MG - 0.1037 MG - 16.2 MG-0.0065 MG PO BID UP TO QID
     Route: 048
     Dates: start: 20100720
  6. ACIPHEX [Concomitant]
     Dosage: 20 MG, QD
     Route: 048
     Dates: start: 20100720
  7. VALTREX [Concomitant]
     Dosage: 500 MG, QD
     Route: 048
     Dates: start: 20100720
  8. CARAFATE [Concomitant]
     Dosage: 1 G, QD
     Route: 048
     Dates: start: 20100720
  9. PRO-AIR [Concomitant]
     Dosage: 90 ?G, QID, 2 PUFFS, INHALATION
     Dates: start: 20100711, end: 20100720
  10. TESSALON PERLES [Concomitant]
     Dosage: 100 MG, TID
     Route: 048
     Dates: start: 20100711, end: 20100720
  11. ZITHROMAX [Concomitant]
     Dosage: 250 MG, UNK
     Route: 048
     Dates: start: 20100720
  12. IMITREX [Concomitant]
     Dosage: 100 MG, QD
     Route: 048
     Dates: start: 20100720
  13. CHANTIX [Concomitant]
     Dosage: 100 MG, UNK
     Dates: start: 20100611, end: 20100720
  14. TORADOL [Concomitant]
     Dosage: 30 MG, UNK
     Route: 030
     Dates: start: 20100720
  15. HYOSCYAMINE [Concomitant]
     Dosage: 0.125 PO Q 4H (EVERY 4 HOURS), PRN
     Route: 048
     Dates: start: 20100720
  16. PAMELOR [Concomitant]
     Dosage: 10 MG, AT NIGHT
     Route: 048
     Dates: start: 20100720
  17. MOTRIN [Concomitant]
     Dosage: 800 MG, TID
     Route: 048
     Dates: start: 20100720
  18. FLEXERIL [Concomitant]
     Dosage: 10 MG, HS
     Route: 048
     Dates: start: 20100720
  19. PRILOSEC [Concomitant]
     Dosage: 40 MG, QD
     Route: 048
     Dates: start: 20100720
  20. PHENERGAN [Concomitant]
     Dosage: 25 MG, TID
     Route: 048
     Dates: start: 20100720
  21. ACTOS [Concomitant]
     Dosage: UNK
     Dates: start: 20100720

REACTIONS (9)
  - Thrombosis [None]
  - Deep vein thrombosis [Recovered/Resolved]
  - Pain [None]
  - Injury [None]
  - General physical health deterioration [None]
  - Abdominal pain [None]
  - Emotional distress [None]
  - Anxiety [None]
  - Pain [None]
